FAERS Safety Report 8422554-0 (Version None)
Quarter: 2012Q2

REPORT INFORMATION
  Report Type: 
  Country: None (occurrence: None)
  Receive Date: 20120604
  Receipt Date: 20120517
  Transmission Date: 20120825
  Serious: Yes (Other)
  Sender: FDA-Public Use
  Company Number: DSA_57478_2012

PATIENT
  Sex: Female

DRUGS (58)
  1. BREVOXIL [Concomitant]
  2. DULCOLAX [Concomitant]
  3. CIPROFLOXACIN HCL [Concomitant]
  4. YASMIN [Concomitant]
  5. DARARBAZINE [Concomitant]
  6. IRON SULFATETHIAMIN COMPOUND TAB [Concomitant]
  7. PREGABALIN [Concomitant]
  8. FENOFIBRATE [Concomitant]
  9. NALOXONE [Concomitant]
  10. METHYLPREDNISOLONE [Concomitant]
  11. DOXORUBICIN HCL [Concomitant]
  12. OXYCODONE HCL [Concomitant]
  13. CLOBETASOL PROPIONATE [Concomitant]
  14. ELIDEL [Suspect]
     Indication: ECZEMA
     Dosage: DF TOPICAL
     Route: 061
     Dates: start: 20040101
  15. LANOLIN [Concomitant]
  16. DESOWEN [Concomitant]
  17. PERI-COLACE [Concomitant]
  18. IBUPROFEN [Concomitant]
  19. ZOLPIDEM [Concomitant]
  20. TRIPHASIL-21 [Concomitant]
  21. FLOXIN OTIC [Concomitant]
  22. TYLENOL W/ CODEINE NO. 3 [Concomitant]
  23. TRIMETHOBENZAMIDE HCL [Concomitant]
  24. CIPROFLAXACIN [Concomitant]
  25. LIOTHYRONINE SODIUM [Concomitant]
  26. KETOCONAZOLE [Concomitant]
  27. ACETASOL HC [Concomitant]
  28. ZOFRAN [Concomitant]
  29. LORAZEPAM [Concomitant]
  30. AMBIEN [Concomitant]
  31. NIZORAL [Concomitant]
  32. MORPHINE [Concomitant]
  33. OXYCODONE HCL AND ACETAMINOPHEN [Concomitant]
  34. PROMETHAZINE [Concomitant]
  35. BLEOMYCIN SULFATE [Concomitant]
  36. TRICOR [Concomitant]
  37. ZOLPIDEM TARTRATE [Concomitant]
  38. LANSOPRAZOLE [Concomitant]
  39. DESOXIMETASONE [Concomitant]
  40. PHENERGAN [Concomitant]
  41. ALLOPURINOL [Concomitant]
  42. CEFOTAN [Concomitant]
  43. KETOROLAC TROMETHAMINE [Concomitant]
  44. VINBLASTINE SULFATE [Concomitant]
  45. ATIVAN [Concomitant]
  46. LORTAB [Concomitant]
  47. NAPROXEN (ALEVE) [Concomitant]
  48. NEULASTA [Concomitant]
  49. MAGNESIUM HYDROXIDE TAB [Concomitant]
  50. PHENTERMINE [Concomitant]
  51. DOCUSATE SODIUM [Concomitant]
  52. ACETAMINOPHEN [Concomitant]
  53. SIMETHICONE [Concomitant]
  54. TRIAMCINOLONE [Concomitant]
  55. SYNTHROID [Concomitant]
  56. DEXAMETHASONE [Concomitant]
  57. GABAPENTIN [Concomitant]
  58. AMOXICILLIN [Concomitant]

REACTIONS (42)
  - AMNESIA [None]
  - CAESAREAN SECTION [None]
  - DYSURIA [None]
  - BLISTER [None]
  - WEIGHT DECREASED [None]
  - PARAESTHESIA [None]
  - HAEMORRHOIDS [None]
  - SUICIDAL IDEATION [None]
  - MATERNAL EXPOSURE DURING PREGNANCY [None]
  - HYPOTHYROIDISM [None]
  - ASTHMA [None]
  - OVARIAN MASS [None]
  - HYPOAESTHESIA [None]
  - CONSTIPATION [None]
  - VULVAL ULCERATION [None]
  - SINUSITIS [None]
  - UMBILICAL CORD ABNORMALITY [None]
  - NIGHT SWEATS [None]
  - CHEST DISCOMFORT [None]
  - ECTOPIC PREGNANCY [None]
  - HODGKIN'S DISEASE [None]
  - MYOCARDIAL INFARCTION [None]
  - BLADDER DISORDER [None]
  - MIGRAINE [None]
  - ABORTION SPONTANEOUS [None]
  - NEUROPATHY PERIPHERAL [None]
  - ARTHRITIS [None]
  - DIZZINESS [None]
  - GINGIVITIS [None]
  - DYSMENORRHOEA [None]
  - CARDIAC MURMUR [None]
  - HYPERLIPIDAEMIA [None]
  - RENAL DISORDER [None]
  - POSTPARTUM HAEMORRHAGE [None]
  - FALLOPIAN TUBE OPERATION [None]
  - EAR INFECTION [None]
  - OTITIS MEDIA ACUTE [None]
  - HYPERTENSION [None]
  - BONE PAIN [None]
  - ANAEMIA [None]
  - DIABETES MELLITUS [None]
  - MUSCULAR WEAKNESS [None]
